FAERS Safety Report 14160709 (Version 3)
Quarter: 2018Q1

REPORT INFORMATION
  Report Type: Spontaneous
  Country: US (occurrence: US)
  Receive Date: 20171105
  Receipt Date: 20180107
  Transmission Date: 20180508
  Serious: Yes (Other)
  Sender: FDA-Public Use
  Company Number: US-SHIRE-US201724414

PATIENT

DRUGS (1)
  1. GATTEX [Suspect]
     Active Substance: TEDUGLUTIDE\WATER
     Indication: SHORT-BOWEL SYNDROME
     Dosage: 0.265 IU, UNK
     Route: 065
     Dates: start: 20161024

REACTIONS (3)
  - Abdominal pain upper [Not Recovered/Not Resolved]
  - Weight fluctuation [Unknown]
  - Headache [Not Recovered/Not Resolved]
